FAERS Safety Report 4319725-1 (Version None)
Quarter: 2004Q1

REPORT INFORMATION
  Report Type: 
  Country: None (occurrence: None)
  Receive Date: 20040316
  Receipt Date: 20040304
  Transmission Date: 20041129
  Serious: Yes (Other)
  Sender: FDA-Public Use
  Company Number: US-JNJFOC-20040300768

PATIENT
  Age: 51 Year
  Sex: Female
  Weight: 133.3575 kg

DRUGS (22)
  1. REMICADE [Suspect]
     Indication: PSORIASIS
     Dosage: 10 MG/KG, INTRAVENOUS; 10 MG/KD, INTRAVENOUS
     Route: 042
     Dates: start: 20010703, end: 20010703
  2. REMICADE [Suspect]
     Indication: RHEUMATOID ARTHRITIS
     Dosage: 10 MG/KG, INTRAVENOUS; 10 MG/KD, INTRAVENOUS
     Route: 042
     Dates: start: 20010703, end: 20010703
  3. REMICADE [Suspect]
     Indication: PSORIASIS
     Dosage: 10 MG/KG, INTRAVENOUS; 10 MG/KD, INTRAVENOUS
     Route: 042
     Dates: start: 20040120, end: 20040120
  4. REMICADE [Suspect]
     Indication: RHEUMATOID ARTHRITIS
     Dosage: 10 MG/KG, INTRAVENOUS; 10 MG/KD, INTRAVENOUS
     Route: 042
     Dates: start: 20040120, end: 20040120
  5. MULTIVITAMIN [Concomitant]
  6. HUMULIN (NOVOLIN 20/80) [Concomitant]
  7. HUMALOG [Concomitant]
  8. GUANFACINE HCL [Concomitant]
  9. METFORMIN HCL [Concomitant]
  10. GLYBURIDE [Concomitant]
  11. PREMARIN [Concomitant]
  12. FOLIC ACID [Concomitant]
  13. TRICOR [Concomitant]
  14. METHOTREXATE [Concomitant]
  15. ALLOPURINOL [Concomitant]
  16. CELEBREX [Concomitant]
  17. LIPITOR [Concomitant]
  18. MAVIK [Concomitant]
  19. VITAMIN E [Concomitant]
  20. STOOL SOFTNER (DOCUSATE SODIUM) [Concomitant]
  21. ACETAMINOPHEN [Concomitant]
  22. ASPIRIN [Concomitant]

REACTIONS (6)
  - DYSPHAGIA [None]
  - LYMPHADENOPATHY [None]
  - LYMPHOMA [None]
  - NECK MASS [None]
  - THYROID GLAND SCAN ABNORMAL [None]
  - THYROID MASS [None]
